FAERS Safety Report 8317855-0 (Version None)
Quarter: 2012Q2

REPORT INFORMATION
  Report Type: 
  Country: None (occurrence: None)
  Receive Date: 20120427
  Receipt Date: 20120424
  Transmission Date: 20120825
  Serious: Yes (Death)
  Sender: FDA-Public Use
  Company Number: GB-SANOFI-AVENTIS-2012SA028911

PATIENT
  Age: 61 Year
  Sex: Female

DRUGS (11)
  1. AMLODIPINE [Concomitant]
  2. ATENOLOL AND CHLORTHALIDONE [Suspect]
     Indication: ISCHAEMIC STROKE
     Route: 048
     Dates: start: 20120314, end: 20120317
  3. ISOSORBIDE MONONITRATE [Concomitant]
  4. PIPERACILLIN AND TAZOBACTAM [Concomitant]
  5. HUMULIN R [Concomitant]
  6. SPIRONOLACTONE [Concomitant]
  7. METFORMIN HCL [Concomitant]
  8. FLUCLOXACILLIN [Concomitant]
     Indication: EXTERNAL EAR CELLULITIS
  9. FUROSEMIDE [Concomitant]
  10. METRONIDAZOLE [Concomitant]
  11. ASPIRIN [Concomitant]
     Indication: ISCHAEMIC STROKE

REACTIONS (4)
  - TOXIC EPIDERMAL NECROLYSIS [None]
  - RASH [None]
  - SKIN EXFOLIATION [None]
  - RENAL IMPAIRMENT [None]
